FAERS Safety Report 25946786 (Version 1)
Quarter: 2025Q4

REPORT INFORMATION
  Report Type: Spontaneous
  Country: GB (occurrence: GB)
  Receive Date: 20251022
  Receipt Date: 20251022
  Transmission Date: 20260118
  Serious: Yes (Other)
  Sender: AUROBINDO
  Company Number: GB-MHRA-MED-202510122220098430-KLVPR

PATIENT
  Age: 82 Year
  Sex: Female

DRUGS (1)
  1. DOXAZOSIN [Suspect]
     Active Substance: DOXAZOSIN MESYLATE
     Indication: Hypertension
     Dosage: 4
     Route: 065
     Dates: start: 202501, end: 202505

REACTIONS (2)
  - Medication error [Unknown]
  - Nipple pain [Recovered/Resolved]

NARRATIVE: CASE EVENT DATE: 20250301
